FAERS Safety Report 25886449 (Version 1)
Quarter: 2025Q4

REPORT INFORMATION
  Report Type: Spontaneous
  Country: US (occurrence: None)
  Receive Date: 20251005
  Receipt Date: 20251005
  Transmission Date: 20260117
  Serious: Yes (Hospitalization)
  Sender: FDA-CTU
  Company Number: None

PATIENT
  Age: 60 Year
  Sex: Male

DRUGS (5)
  1. XYNTHA [Suspect]
     Active Substance: MOROCTOCOG ALFA
     Indication: Factor VIII deficiency
     Dosage: OTHER FREQUENCY : 3X/WK AND PRN;?
     Route: 040
     Dates: start: 20140325
  2. XYNTHA [Suspect]
     Active Substance: MOROCTOCOG ALFA
     Indication: Factor VIII deficiency
     Dosage: OTHER FREQUENCY : 3X/WK AND PRN;?
     Route: 040
     Dates: start: 20140325
  3. XYNTHA SOLOFUSE (3040U) [Concomitant]
  4. XYNTHA SOLOFUSE (973U) [Concomitant]
  5. XYNTHA SOLOFUSE (468U) [Concomitant]

REACTIONS (2)
  - Constipation [None]
  - Feeding disorder [None]

NARRATIVE: CASE EVENT DATE: 20250624
